FAERS Safety Report 7757828-X (Version None)
Quarter: 2011Q3

REPORT INFORMATION
  Report Type: 
  Country: None (occurrence: None)
  Receive Date: 20110918
  Receipt Date: 20110830
  Transmission Date: 20111222
  Serious: Yes (Disabling, Other)
  Sender: FDA-Public Use
  Company Number: PHHY2011FR79516

PATIENT
  Age: 74 Year
  Sex: Male

DRUGS (1)
  1. FLUVASTATIN SODIUM [Suspect]
     Dosage: UNK
     Route: 048
     Dates: start: 20010101, end: 20110601

REACTIONS (1)
  - TENDON RUPTURE [None]
